FAERS Safety Report 9336034 (Version 2)
Quarter: 2016Q2

REPORT INFORMATION
  Report Type: Report from Study
  Country: US (occurrence: US)
  Receive Date: 20130607
  Receipt Date: 20160622
  Transmission Date: 20160815
  Serious: Yes (Death)
  Sender: FDA-Public Use
  Company Number: US-ROCHE-1206638

PATIENT
  Age: 54 Year
  Sex: Male

DRUGS (3)
  1. XELODA [Suspect]
     Active Substance: CAPECITABINE
     Indication: OESOPHAGEAL CARCINOMA
     Dosage: TAKE 1 TAB 2 TIMES IN DAY, FOR 21 DAYS THEN OFF 7DAY
     Route: 048
  2. XELODA [Suspect]
     Active Substance: CAPECITABINE
     Dosage: 625 MG/M2 X 1.98 M2
     Route: 048
  3. XELODA [Suspect]
     Active Substance: CAPECITABINE
     Dosage: 2.5 TABLETS BY MOUTH 2 TIMES DAILY FOR 21 DAYS
     Route: 048

REACTIONS (2)
  - Blood count abnormal [Unknown]
  - Death [Fatal]

NARRATIVE: CASE EVENT DATE: 20130524
